FAERS Safety Report 6182904-5 (Version None)
Quarter: 2009Q2

REPORT INFORMATION
  Report Type: 
  Country: None (occurrence: None)
  Receive Date: 20090507
  Receipt Date: 20090427
  Transmission Date: 20091009
  Serious: Yes (Hospitalization, Other)
  Sender: FDA-Public Use
  Company Number: US-MERCK-0902USA01609

PATIENT
  Age: 71 Year
  Sex: Female

DRUGS (6)
  1. FOSAMAX [Suspect]
     Indication: OSTEOPENIA
     Route: 048
     Dates: start: 20060601, end: 20080701
  2. FOSAMAX [Suspect]
     Route: 048
     Dates: start: 20040101
  3. FOSAMAX [Suspect]
     Indication: OSTEOPOROSIS
     Route: 048
     Dates: start: 20060601, end: 20080701
  4. FOSAMAX [Suspect]
     Route: 048
     Dates: start: 20040101
  5. NORTRIPTYLINE [Concomitant]
     Indication: BACK PAIN
     Route: 065
     Dates: start: 19950101
  6. HYDROCODONE BITARTRATE + ACETAMINOPHEN [Concomitant]
     Indication: BACK PAIN
     Route: 065
     Dates: start: 20010101

REACTIONS (5)
  - GINGIVAL INFECTION [None]
  - IMPAIRED HEALING [None]
  - NEPHROLITHIASIS [None]
  - OSTEONECROSIS [None]
  - PERIODONTAL DISEASE [None]
